FAERS Safety Report 7661934-8 (Version None)
Quarter: 2011Q3

REPORT INFORMATION
  Report Type: 
  Country: None (occurrence: None)
  Receive Date: 20110805
  Receipt Date: 20101202
  Transmission Date: 20111222
  Serious: No
  Sender: FDA-Public Use
  Company Number: US-ABBOTT-10P-163-0689656-00

PATIENT
  Sex: Male
  Weight: 74.91 kg

DRUGS (8)
  1. NIASPAN [Suspect]
     Dates: start: 20101101
  2. METFORMIN HCL [Concomitant]
     Indication: DIABETES MELLITUS
     Dates: start: 20101001
  3. ALLEGRA [Concomitant]
     Indication: HYPERSENSITIVITY
  4. NIASPAN [Suspect]
     Indication: HIGH DENSITY LIPOPROTEIN DECREASED
     Dates: start: 20101001, end: 20101031
  5. NORVASC [Concomitant]
     Indication: HYPERTENSION
  6. NEXIUM [Concomitant]
     Indication: GASTROOESOPHAGEAL REFLUX DISEASE
  7. LISINOPRIL [Concomitant]
     Indication: HYPERTENSION
  8. FLONASE [Concomitant]
     Indication: HYPERSENSITIVITY

REACTIONS (2)
  - FLUSHING [None]
  - ABDOMINAL DISCOMFORT [None]
